FAERS Safety Report 9276950 (Version 8)
Quarter: 2014Q2

REPORT INFORMATION
  Report Type: Report from Study
  Country: ES (occurrence: ES)
  Receive Date: 20130507
  Receipt Date: 20140617
  Transmission Date: 20141212
  Serious: Yes (Hospitalization, Other)
  Sender: FDA-Public Use
  Company Number: ES-009507513-1305ESP000221

PATIENT
  Age: 51 Year
  Sex: Female
  Weight: 67 kg

DRUGS (6)
  1. BOCEPREVIR [Suspect]
     Indication: CHRONIC HEPATITIS C
     Dosage: 2400  MG DAILY
     Route: 048
     Dates: start: 20130225, end: 20130422
  2. COPEGUS [Suspect]
     Indication: CHRONIC HEPATITIS C
     Dosage: 1000MG DAILY
     Route: 048
     Dates: start: 20130121
  3. COPEGUS [Suspect]
     Dosage: 800 MG DAILY
     Route: 048
     Dates: start: 20130326, end: 20130422
  4. PEGASYS [Suspect]
     Indication: CHRONIC HEPATITIS C
     Dosage: 180 UG/WEEK
     Dates: start: 20130121, end: 20130422
  5. RITUXIMAB [Concomitant]
  6. PREDNISONE [Concomitant]

REACTIONS (3)
  - Sepsis [Recovered/Resolved]
  - Drug ineffective [Recovered/Resolved]
  - Anaemia [Recovered/Resolved]
